FAERS Safety Report 6904803-0 (Version None)
Quarter: 2010Q3

REPORT INFORMATION
  Report Type: 
  Country: None (occurrence: None)
  Receive Date: 20100804
  Receipt Date: 20090713
  Transmission Date: 20110219
  Serious: No
  Sender: FDA-Public Use
  Company Number: US-PFIZER INC-2009219711

PATIENT
  Sex: Female
  Weight: 42.63 kg

DRUGS (6)
  1. LYRICA [Suspect]
     Indication: FIBROMYALGIA
     Dates: start: 20081201
  2. MAXALT [Concomitant]
  3. CLONAZEPAM [Concomitant]
  4. TRAMADOL [Concomitant]
  5. LEVOTHYROXINE [Concomitant]
  6. SEROQUEL [Concomitant]

REACTIONS (2)
  - DIZZINESS [None]
  - WEIGHT INCREASED [None]
